FAERS Safety Report 5404477-4 (Version None)
Quarter: 2007Q3

REPORT INFORMATION
  Report Type: 
  Country: None (occurrence: None)
  Receive Date: 20070802
  Receipt Date: 20070723
  Transmission Date: 20080115
  Serious: Yes (Other)
  Sender: FDA-Public Use
  Company Number: US-PFIZER INC-2007061746

PATIENT
  Sex: Male
  Weight: 56.818 kg

DRUGS (11)
  1. CHANTIX [Suspect]
     Route: 048
  2. LAMICTAL [Concomitant]
     Indication: MENTAL DISORDER
     Route: 048
  3. WELLBUTRIN [Concomitant]
     Indication: MENTAL DISORDER
     Route: 048
  4. ABILIFY [Concomitant]
     Indication: MENTAL DISORDER
     Route: 048
  5. THORAZINE [Concomitant]
     Indication: MENTAL DISORDER
     Route: 048
  6. STRATTERA [Concomitant]
     Indication: MENTAL DISORDER
     Route: 048
  7. LISINOPRIL [Concomitant]
     Route: 048
  8. INSULIN [Concomitant]
     Indication: TYPE 1 DIABETES MELLITUS
  9. ZOCOR [Concomitant]
     Indication: BLOOD CHOLESTEROL INCREASED
     Route: 048
  10. GEMFIBROZIL [Concomitant]
     Indication: LIPIDS INCREASED
     Route: 048
  11. SYNTHROID [Concomitant]
     Indication: HYPOTHYROIDISM
     Route: 048

REACTIONS (5)
  - DRUG DEPENDENCE [None]
  - DRY MOUTH [None]
  - MANIA [None]
  - MOOD SWINGS [None]
  - SMOKER [None]
